FAERS Safety Report 5001627-9 (Version None)
Quarter: 2006Q2

REPORT INFORMATION
  Report Type: 
  Country: None (occurrence: None)
  Receive Date: 20060511
  Receipt Date: 20060511
  Transmission Date: 20061013
  Serious: Yes (Hospitalization, Other)
  Sender: FDA-Public Use
  Company Number: None

PATIENT
  Sex: Male
  Weight: 80.7 kg

DRUGS (5)
  1. DAUNORUBICIN [Suspect]
     Indication: ACUTE LYMPHOCYTIC LEUKAEMIA
     Dosage: 462 MG
     Dates: start: 20051202
  2. ELSPAR [Suspect]
     Dosage: 120000 IU
  3. METHOTREXATE [Suspect]
     Dosage: 12.5 MG
  4. PREDNISONE TAB [Suspect]
     Dosage: 3360 MG
  5. VINCRISTINE SULFATE [Suspect]
     Dosage: 8 MG

REACTIONS (5)
  - DEEP VEIN THROMBOSIS [None]
  - FEBRILE NEUTROPENIA [None]
  - PNEUMONIA [None]
  - PULMONARY EMBOLISM [None]
  - PULMONARY INFARCTION [None]
